FAERS Safety Report 15854410 (Version 1)
Quarter: 2019Q1

REPORT INFORMATION
  Report Type: Spontaneous
  Country: US (occurrence: US)
  Receive Date: 20190117
  Receipt Date: 20190117
  Transmission Date: 20190417
  Serious: Yes (Other)
  Sender: FDA-Public Use
  Company Number: None

PATIENT
  Age: 69 Year
  Sex: Female
  Weight: 87.09 kg

DRUGS (11)
  1. NEXIUM [Concomitant]
     Active Substance: ESOMEPRAZOLE MAGNESIUM
  2. ALPRAZOLAM. [Concomitant]
     Active Substance: ALPRAZOLAM
  3. CLARITIN [Concomitant]
     Active Substance: LORATADINE
  4. HYDROCODONE [Concomitant]
     Active Substance: HYDROCODONE
  5. AMLODIPINE [Concomitant]
     Active Substance: AMLODIPINE BESYLATE
  6. MILK THISTLE [Concomitant]
     Active Substance: DIETARY SUPPLEMENT\HERBALS\MILK THISTLE
  7. ABILIFY [Suspect]
     Active Substance: ARIPIPRAZOLE
  8. OLMES MEDOXOMIL [Concomitant]
  9. NIACIN. [Concomitant]
     Active Substance: NIACIN
  10. PROVIGIL [Concomitant]
     Active Substance: MODAFINIL
  11. VITAMIN D3 [Concomitant]
     Active Substance: CHOLECALCIFEROL

REACTIONS (11)
  - Skin striae [None]
  - Oral discomfort [None]
  - Hypokinesia [None]
  - Fall [None]
  - Therapeutic response changed [None]
  - Hypersensitivity [None]
  - Anaphylactic reaction [None]
  - Red blood cell count decreased [None]
  - Blood pressure increased [None]
  - Adverse event [None]
  - Headache [None]

NARRATIVE: CASE EVENT DATE: 20180901
